FAERS Safety Report 12262457 (Version 1)
Quarter: 2016Q2

REPORT INFORMATION
  Report Type: Spontaneous
  Country: US (occurrence: None)
  Receive Date: 20160412
  Receipt Date: 20160412
  Transmission Date: 20160815
  Serious: Yes (Hospitalization)
  Sender: FDA-Public Use
  Company Number: None

PATIENT
  Age: 77 Year
  Sex: Male

DRUGS (22)
  1. CALCIUM +D [Concomitant]
     Active Substance: CALCIUM\VITAMIN D
  2. POLYETH GLYCOL [Concomitant]
  3. KETOROLAC [Concomitant]
     Active Substance: KETOROLAC\KETOROLAC TROMETHAMINE
  4. PROLENSA [Concomitant]
     Active Substance: BROMFENAC SODIUM
  5. KCL [Concomitant]
     Active Substance: POTASSIUM CHLORIDE
  6. FUROSEMIDE. [Concomitant]
     Active Substance: FUROSEMIDE
  7. ATENOLOL. [Concomitant]
     Active Substance: ATENOLOL
  8. DUREZOL [Concomitant]
     Active Substance: DIFLUPREDNATE
  9. FAMOTIDINE. [Concomitant]
     Active Substance: FAMOTIDINE
  10. TAMSULOSIN [Concomitant]
     Active Substance: TAMSULOSIN
  11. LISINOPRIL. [Concomitant]
     Active Substance: LISINOPRIL
  12. ALLOPURINOL. [Concomitant]
     Active Substance: ALLOPURINOL
  13. AMLODIPINE [Concomitant]
     Active Substance: AMLODIPINE BESYLATE
  14. SUCRALFATE. [Concomitant]
     Active Substance: SUCRALFATE
  15. OMEPRAZOLE. [Concomitant]
     Active Substance: OMEPRAZOLE
  16. FISH OIL [Concomitant]
     Active Substance: FISH OIL
  17. GLIMEPIRIDE. [Concomitant]
     Active Substance: GLIMEPIRIDE
  18. BESIVANCE [Concomitant]
     Active Substance: BESIFLOXACIN
  19. ZYTIGA [Suspect]
     Active Substance: ABIRATERONE ACETATE
     Indication: PROSTATE CANCER
     Route: 048
     Dates: start: 20131011
  20. SIMVASTATIN. [Concomitant]
     Active Substance: SIMVASTATIN
  21. PREDNISONE. [Concomitant]
     Active Substance: PREDNISONE
  22. PREDNISOLONE. [Concomitant]
     Active Substance: PREDNISOLONE

REACTIONS (2)
  - Therapy cessation [None]
  - Aneurysm [None]

NARRATIVE: CASE EVENT DATE: 20160303
